FAERS Safety Report 7794493-X (Version None)
Quarter: 2011Q4

REPORT INFORMATION
  Report Type: 
  Country: None (occurrence: None)
  Receive Date: 20111004
  Receipt Date: 20110930
  Transmission Date: 20120403
  Serious: Yes (Hospitalization)
  Sender: FDA-Public Use
  Company Number: US-PFIZER INC-2011230893

PATIENT
  Age: 53 Year
  Sex: Male
  Weight: 77 kg

DRUGS (3)
  1. ACETYLSALICYLIC ACID [Concomitant]
     Indication: CARDIAC DISORDER
     Dosage: UNK
  2. PROTONIX [Suspect]
     Indication: GASTRITIS
     Dosage: 40 MG, DAILY
     Dates: start: 20100101
  3. XOPENEX [Concomitant]
     Indication: ASTHMA
     Dosage: UNK

REACTIONS (2)
  - DRUG SCREEN FALSE POSITIVE [None]
  - ROAD TRAFFIC ACCIDENT [None]
